FAERS Safety Report 4788488-8 (Version None)
Quarter: 2005Q4

REPORT INFORMATION
  Report Type: 
  Country: None (occurrence: None)
  Receive Date: 20051005
  Receipt Date: 20050929
  Transmission Date: 20060501
  Serious: Yes (Hospitalization)
  Sender: FDA-Public Use
  Company Number: 2005CG01623

PATIENT
  Age: 44 Year
  Sex: Male
  Weight: 50 kg

DRUGS (5)
  1. NEXIUM [Suspect]
     Route: 048
     Dates: end: 20050804
  2. OXACILLIN [Suspect]
     Indication: SEPSIS
     Route: 042
     Dates: start: 20050622, end: 20050803
  3. OXACILLIN [Suspect]
     Indication: ENDOCARDITIS BACTERIAL
     Route: 042
     Dates: start: 20050622, end: 20050803
  4. OFLOCET [Suspect]
     Indication: SEPSIS
     Route: 048
     Dates: start: 20050622, end: 20050803
  5. OFLOCET [Suspect]
     Indication: ENDOCARDITIS BACTERIAL
     Route: 048
     Dates: start: 20050622, end: 20050803

REACTIONS (1)
  - AGRANULOCYTOSIS [None]
